FAERS Safety Report 7049367-9 (Version None)
Quarter: 2010Q4

REPORT INFORMATION
  Report Type: 
  Country: None (occurrence: None)
  Receive Date: 20101018
  Receipt Date: 20101006
  Transmission Date: 20110411
  Serious: Yes (Other)
  Sender: FDA-Public Use
  Company Number: US-SANOFI-AVENTIS-2010SA061254

PATIENT
  Age: 73 Year
  Sex: Male

DRUGS (9)
  1. MULTAQ [Suspect]
     Indication: ATRIAL FIBRILLATION
     Route: 048
     Dates: start: 20100201
  2. METOPROLOL [Concomitant]
  3. ISOSORBIDE [Concomitant]
  4. LASIX [Concomitant]
  5. ZOCOR [Concomitant]
  6. ENALAPRIL MALEATE [Concomitant]
  7. PAXIL [Concomitant]
  8. WARFARIN SODIUM [Concomitant]
  9. MAGNESIUM OXIDE [Concomitant]

REACTIONS (3)
  - ANAPHYLACTIC REACTION [None]
  - DYSPNOEA [None]
  - PHARYNGEAL OEDEMA [None]
